FAERS Safety Report 9598864 (Version 1)
Quarter: 2013Q4

REPORT INFORMATION
  Report Type: Spontaneous
  Country: US (occurrence: US)
  Receive Date: 20131004
  Receipt Date: 20131004
  Transmission Date: 20140711
  Serious: No
  Sender: FDA-Public Use
  Company Number: US-AMGEN-USASP2013025818

PATIENT
  Age: 61 Year
  Sex: Female
  Weight: 90.7 kg

DRUGS (16)
  1. ENBREL [Suspect]
     Indication: PRODUCT USED FOR UNKNOWN INDICATION
     Dosage: 50 MG, QWK
     Route: 058
  2. WARFARIN [Concomitant]
     Dosage: 10 MG, UNK
  3. TYLENOL W/CODEINE NO. 3 [Concomitant]
     Dosage: UNK
  4. CYMBALTA [Concomitant]
     Dosage: 20 MG, UNK
  5. METHOTREXATE [Concomitant]
     Dosage: 2.5 MG, UNK
  6. FOLIC ACID [Concomitant]
     Dosage: UNK
  7. FUROSEMIDE [Concomitant]
     Dosage: 20 MG, UNK
  8. LUMIGAN [Concomitant]
     Dosage: UNK, SOL 0.01%
  9. CALTRATE                           /00944201/ [Concomitant]
     Dosage: 600 UNK, UNK
  10. OMEGA 3                            /01334101/ [Concomitant]
     Dosage: 1000 MG, UNK
  11. SYSTANE [Concomitant]
     Dosage: UNK, SOL
  12. LIPITOR [Concomitant]
     Dosage: 10 MG, UNK
  13. ATENOLOL [Concomitant]
     Dosage: 25 MG, UNK
  14. NORVASC [Concomitant]
     Dosage: 2.5 MG, UNK
  15. AZULFIDINE [Concomitant]
     Dosage: 500 MG, UNK
  16. TRIAMTERENE/HCTZ [Concomitant]
     Dosage: 25-37.5

REACTIONS (2)
  - Drug ineffective [Unknown]
  - Arthritis [Unknown]
